FAERS Safety Report 23798002 (Version 4)
Quarter: 2025Q3

REPORT INFORMATION
  Report Type: Report from Study
  Country: EU (occurrence: EU)
  Receive Date: 20240430
  Receipt Date: 20250908
  Transmission Date: 20251021
  Serious: Yes (Hospitalization, Other)
  Sender: MYLAN
  Company Number: EU-JNJFOC-20231249761

PATIENT
  Age: 85 Year
  Sex: Male
  Weight: 72 kg

DRUGS (10)
  1. LENALIDOMIDE [Suspect]
     Active Substance: LENALIDOMIDE
     Indication: Plasma cell myeloma
     Dates: start: 20231201, end: 20231212
  2. DARATUMUMAB\HYALURONIDASE-FIHJ [Suspect]
     Active Substance: DARATUMUMAB\HYALURONIDASE-FIHJ
     Indication: Plasma cell myeloma
     Dosage: 1800 MILLIGRAM, QW, 15ML
     Dates: start: 20231201, end: 20231201
  3. DARATUMUMAB\HYALURONIDASE-FIHJ [Suspect]
     Active Substance: DARATUMUMAB\HYALURONIDASE-FIHJ
     Dates: start: 20231208, end: 20231208
  4. DARATUMUMAB\HYALURONIDASE-FIHJ [Suspect]
     Active Substance: DARATUMUMAB\HYALURONIDASE-FIHJ
     Dates: start: 20231222, end: 20231222
  5. PERINDOPRIL [Concomitant]
     Active Substance: PERINDOPRIL
     Indication: Angina pectoris
  6. BISOPROLOL [Concomitant]
     Active Substance: BISOPROLOL
     Indication: Angina pectoris
     Dosage: 2.5 MILLIGRAM, QD
     Dates: start: 20231006
  7. FENTANYL [Concomitant]
     Active Substance: FENTANYL
     Indication: Pain
     Dosage: 12 INTERNATIONAL UNIT, Q3D
     Dates: start: 20231129, end: 20231130
  8. FENTANYL [Concomitant]
     Active Substance: FENTANYL
     Dosage: 25 INTERNATIONAL UNIT, Q3D
     Dates: start: 20231130
  9. FENTANYL [Concomitant]
     Active Substance: FENTANYL
     Indication: Pain
     Dates: start: 20231129, end: 20231130
  10. FENTANYL [Concomitant]
     Active Substance: FENTANYL

REACTIONS (3)
  - COVID-19 [Recovered/Resolved]
  - Pyrexia [Recovered/Resolved]
  - Neutropenia [Recovered/Resolved]

NARRATIVE: CASE EVENT DATE: 20231201
